FAERS Safety Report 25774140 (Version 1)
Quarter: 2025Q3

REPORT INFORMATION
  Report Type: Spontaneous
  Country: US (occurrence: US)
  Receive Date: 20250908
  Receipt Date: 20250908
  Transmission Date: 20251021
  Serious: Yes (Other)
  Sender: GLAND PHARMA LTD
  Company Number: US-GLANDPHARMA-US-2025GLNSPO01775

PATIENT

DRUGS (2)
  1. CISPLATIN [Suspect]
     Active Substance: CISPLATIN
     Indication: Product used for unknown indication
     Route: 065
  2. GEMZAR [Suspect]
     Active Substance: GEMCITABINE HYDROCHLORIDE
     Indication: Product used for unknown indication
     Route: 065

REACTIONS (8)
  - Atrial fibrillation [Unknown]
  - Neuropathy peripheral [Unknown]
  - Illness [Unknown]
  - Gait disturbance [Unknown]
  - Peripheral swelling [Unknown]
  - Nausea [Unknown]
  - Pain [Unknown]
  - Asthenia [Unknown]
